FAERS Safety Report 4643370-1 (Version None)
Quarter: 2005Q2

REPORT INFORMATION
  Report Type: 
  Country: None (occurrence: None)
  Receive Date: 20050421
  Receipt Date: 20050408
  Transmission Date: 20051028
  Serious: Yes (Hospitalization, Disabling, Other)
  Sender: FDA-Public Use
  Company Number: 2004058034

PATIENT
  Age: 50 Year
  Sex: Male
  Weight: 36.2651 kg

DRUGS (3)
  1. NEURONTIN [Suspect]
     Indication: BIPOLAR DISORDER
     Dosage: 1800 MG (TOTAL)
  2. IBUPROFEN [Suspect]
     Indication: PAIN
     Dosage: 2400 MG (600 MG, 4 IN 1 D), ORAL
     Route: 048
  3. OLANZAPINE (OLANZAPINE) [Concomitant]

REACTIONS (21)
  - AFFECT LABILITY [None]
  - ANXIETY [None]
  - CHEST PAIN [None]
  - DRUG INEFFECTIVE [None]
  - GRANDIOSITY [None]
  - HALLUCINATION, AUDITORY [None]
  - HYPERHIDROSIS [None]
  - INSOMNIA [None]
  - LIMB INJURY [None]
  - NEPHRITIS INTERSTITIAL [None]
  - OFF LABEL USE [None]
  - OPIATES POSITIVE [None]
  - OVERDOSE [None]
  - PAIN [None]
  - PRESSURE OF SPEECH [None]
  - RESTLESSNESS [None]
  - SPEECH DISORDER [None]
  - STRESS [None]
  - SUICIDAL IDEATION [None]
  - SUICIDE ATTEMPT [None]
  - TEARFULNESS [None]
